FAERS Safety Report 4968479-4 (Version None)
Quarter: 2006Q2

REPORT INFORMATION
  Report Type: 
  Country: None (occurrence: None)
  Receive Date: 20060410
  Receipt Date: 20060331
  Transmission Date: 20061013
  Serious: Yes (Hospitalization)
  Sender: FDA-Public Use
  Company Number: ES-MERCK-0604ESP00009

PATIENT
  Age: 8 Month
  Sex: Male

DRUGS (2)
  1. SINGULAIR [Suspect]
     Indication: BRONCHIAL HYPERACTIVITY
     Route: 048
     Dates: end: 20050101
  2. SINGULAIR [Suspect]
     Indication: DYSPLASIA
     Route: 048
     Dates: end: 20050101

REACTIONS (4)
  - ADRENAL INSUFFICIENCY [None]
  - CEREBRAL HAEMORRHAGE [None]
  - ENDOCRINE DISORDER [None]
  - HYPOPITUITARISM [None]
